FAERS Safety Report 5531260-1 (Version None)
Quarter: 2007Q4

REPORT INFORMATION
  Report Type: 
  Country: None (occurrence: None)
  Receive Date: 20071127
  Receipt Date: 20071108
  Transmission Date: 20080405
  Serious: Yes (Death)
  Sender: FDA-Public Use
  Company Number: DAB-2007-00011

PATIENT
  Age: 79 Year
  Sex: Female

DRUGS (3)
  1. PACLITAXEL [Suspect]
     Indication: IRON METABOLISM DISORDER
  2. PACLITAXEL [Suspect]
     Indication: PAPILLARY SEROUS ENDOMETRIAL CARCINOMA
  3. CARBOPLATIN [Concomitant]

REACTIONS (2)
  - CARBOHYDRATE ANTIGEN 125 INCREASED [None]
  - CONDITION AGGRAVATED [None]
